FAERS Safety Report 7720400-1 (Version None)
Quarter: 2011Q3

REPORT INFORMATION
  Report Type: 
  Country: None (occurrence: None)
  Receive Date: 20110830
  Receipt Date: 20110830
  Transmission Date: 20111222
  Serious: No
  Sender: FDA-Public Use
  Company Number: None

PATIENT
  Age: 22 Year
  Sex: Male

DRUGS (1)
  1. ZOSYN [Suspect]
     Dates: start: 20100512, end: 20100513

REACTIONS (12)
  - BLOOD ALKALINE PHOSPHATASE INCREASED [None]
  - DIARRHOEA [None]
  - CHROMATURIA [None]
  - ASPARTATE AMINOTRANSFERASE INCREASED [None]
  - LIVER INJURY [None]
  - PRURITUS [None]
  - FAECES PALE [None]
  - NAUSEA [None]
  - ALANINE AMINOTRANSFERASE INCREASED [None]
  - CHOLELITHIASIS [None]
  - BLOOD BILIRUBIN INCREASED [None]
  - CHOLESTASIS [None]
